FAERS Safety Report 18191574 (Version 6)
Quarter: 2020Q4

REPORT INFORMATION
  Report Type: Spontaneous
  Country: CA (occurrence: CA)
  Receive Date: 20200824
  Receipt Date: 20201123
  Transmission Date: 20210113
  Serious: Yes (Hospitalization, Other)
  Sender: FDA-Public Use
  Company Number: CA-CELLTRION INC.-2019CA028156

PATIENT

DRUGS (9)
  1. INFLECTRA [Suspect]
     Active Substance: INFLIXIMAB-DYYB
     Dosage: 400 MG (EVERY 6 WEEKS)
     Route: 042
     Dates: start: 20200220
  2. INFLECTRA [Suspect]
     Active Substance: INFLIXIMAB-DYYB
     Dosage: 400 MG (EVERY 6 WEEKS)
     Route: 042
     Dates: start: 20200708
  3. INFLECTRA [Suspect]
     Active Substance: INFLIXIMAB-DYYB
     Dosage: 400 MG (EVERY 6 WEEKS)
     Route: 042
     Dates: start: 20200402
  4. INFLECTRA [Suspect]
     Active Substance: INFLIXIMAB-DYYB
     Dosage: 400 MG (EVERY 6 WEEKS)
     Route: 042
     Dates: start: 20200527
  5. INFLECTRA [Suspect]
     Active Substance: INFLIXIMAB-DYYB
     Dosage: 400 MG (EVERY 6 WEEKS)
     Route: 042
     Dates: start: 20201113
  6. METHOTREXATE. [Concomitant]
     Active Substance: METHOTREXATE
     Dosage: 6 DF, WEEKLY
     Route: 048
  7. INFLECTRA [Suspect]
     Active Substance: INFLIXIMAB-DYYB
     Dosage: 400 MG (EVERY 6 WEEKS)
     Route: 042
     Dates: start: 20200819
  8. INFLECTRA [Suspect]
     Active Substance: INFLIXIMAB-DYYB
     Indication: COLITIS ULCERATIVE
     Dosage: 400 MG  (EVERY 6 WEEKS)
     Route: 042
     Dates: start: 20200109
  9. INFLECTRA [Suspect]
     Active Substance: INFLIXIMAB-DYYB
     Dosage: 400 MG (EVERY 6 WEEKS)
     Route: 042
     Dates: start: 20200930

REACTIONS (6)
  - Tooth infection [Recovered/Resolved]
  - Off label use [Unknown]
  - Migraine [Unknown]
  - Intentional product use issue [Unknown]
  - Weight fluctuation [Unknown]
  - Off label use [Unknown]

NARRATIVE: CASE EVENT DATE: 20200109
